FAERS Safety Report 9395093 (Version 1)
Quarter: 2013Q3

REPORT INFORMATION
  Report Type: Spontaneous
  Country: US (occurrence: US)
  Receive Date: 20130711
  Receipt Date: 20130711
  Transmission Date: 20140515
  Serious: Yes (Hospitalization)
  Sender: FDA-Public Use
  Company Number: US-BAYER-2013-084299

PATIENT
  Age: 29 Year
  Sex: Female
  Weight: 79.37 kg

DRUGS (6)
  1. YAZ [Suspect]
  2. ZOFRAN [Concomitant]
  3. PEPCID [Concomitant]
  4. EFFEXOR XR [Concomitant]
  5. SEROQUEL [Concomitant]
  6. TOPAMAX [Concomitant]

REACTIONS (1)
  - Basal ganglia stroke [None]
